FAERS Safety Report 8267819-0 (Version None)
Quarter: 2012Q2

REPORT INFORMATION
  Report Type: 
  Country: None (occurrence: None)
  Receive Date: 20120409
  Receipt Date: 20120330
  Transmission Date: 20120825
  Serious: Yes (Other)
  Sender: FDA-Public Use
  Company Number: US-ASTRAZENECA-2012SE21561

PATIENT
  Age: 12 Year
  Sex: Male

DRUGS (2)
  1. PRILOSEC [Suspect]
     Indication: GASTROOESOPHAGEAL REFLUX DISEASE
     Route: 048
  2. PRILOSEC [Suspect]
     Dosage: ONCE DAILY
     Route: 048

REACTIONS (12)
  - OVERDOSE [None]
  - ABDOMINAL PAIN UPPER [None]
  - ERUCTATION [None]
  - INTENTIONAL DRUG MISUSE [None]
  - GASTROOESOPHAGEAL REFLUX DISEASE [None]
  - ANXIETY [None]
  - SLEEP DISORDER DUE TO GENERAL MEDICAL CONDITION, INSOMNIA TYPE [None]
  - DYSPEPSIA [None]
  - REBOUND EFFECT [None]
  - DRUG PRESCRIBING ERROR [None]
  - ABDOMINAL DISTENSION [None]
  - DEFAECATION URGENCY [None]
